FAERS Safety Report 6999935-5 (Version None)
Quarter: 2010Q3

REPORT INFORMATION
  Report Type: 
  Country: None (occurrence: None)
  Receive Date: 20100920
  Receipt Date: 20100420
  Transmission Date: 20110219
  Serious: No
  Sender: FDA-Public Use
  Company Number: US-ASTRAZENECA-2010SE17573

PATIENT
  Age: 11 Year
  Sex: Female
  Weight: 48.1 kg

DRUGS (9)
  1. SEROQUEL [Suspect]
     Indication: AFFECTIVE DISORDER
     Route: 048
     Dates: start: 20100126
  2. SEROQUEL [Suspect]
     Indication: PSYCHOTIC DISORDER
     Route: 048
     Dates: start: 20100126
  3. SEROQUEL [Suspect]
     Route: 048
     Dates: start: 20100323, end: 20100406
  4. SEROQUEL [Suspect]
     Route: 048
     Dates: start: 20100323, end: 20100406
  5. SEROQUEL [Suspect]
     Route: 048
     Dates: start: 20100323, end: 20100406
  6. SEROQUEL [Suspect]
     Route: 048
     Dates: start: 20100323, end: 20100406
  7. SEROQUEL [Suspect]
     Route: 048
     Dates: start: 20100406
  8. SEROQUEL [Suspect]
     Route: 048
     Dates: start: 20100406
  9. ABILIFY [Concomitant]

REACTIONS (2)
  - EXCESSIVE MASTURBATION [None]
  - WEIGHT INCREASED [None]
